FAERS Safety Report 21532872 (Version 7)
Quarter: 2025Q1

REPORT INFORMATION
  Report Type: Report from Study
  Country: US (occurrence: US)
  Receive Date: 20221101
  Receipt Date: 20250310
  Transmission Date: 20250409
  Serious: Yes (Other)
  Sender: ABBVIE
  Company Number: US-ABBVIE-22K-163-4410482-00

PATIENT
  Age: 79 Year
  Sex: Female

DRUGS (9)
  1. HUMIRA [Suspect]
     Active Substance: ADALIMUMAB
     Indication: Product used for unknown indication
     Route: 058
  2. RINVOQ [Suspect]
     Active Substance: UPADACITINIB
     Indication: Rheumatoid arthritis
     Route: 048
     Dates: start: 20210603
  3. RINVOQ [Suspect]
     Active Substance: UPADACITINIB
     Indication: Rheumatoid arthritis
     Route: 048
  4. RINVOQ [Suspect]
     Active Substance: UPADACITINIB
     Indication: Rheumatoid arthritis
     Route: 048
  5. OXYCONTIN [Concomitant]
     Active Substance: OXYCODONE HYDROCHLORIDE
     Indication: Product used for unknown indication
     Route: 065
  6. MODERNA COVID-19 VACCINE [Concomitant]
     Active Substance: ELASOMERAN
     Indication: COVID-19 immunisation
     Route: 030
     Dates: start: 20210327, end: 20210327
  7. MODERNA COVID-19 VACCINE [Concomitant]
     Active Substance: ELASOMERAN
     Indication: COVID-19 immunisation
     Route: 030
     Dates: start: 20210424, end: 20210424
  8. MODERNA COVID-19 VACCINE [Concomitant]
     Active Substance: ELASOMERAN
     Indication: COVID-19 immunisation
     Route: 030
     Dates: start: 20211129, end: 20211129
  9. HYDROCODONE [Concomitant]
     Active Substance: HYDROCODONE
     Indication: Product used for unknown indication
     Route: 065

REACTIONS (19)
  - Cataract nuclear [Unknown]
  - Cataract [Not Recovered/Not Resolved]
  - Nasopharyngitis [Recovering/Resolving]
  - Unevaluable event [Unknown]
  - Dry throat [Not Recovered/Not Resolved]
  - Inflammation [Unknown]
  - Arthralgia [Not Recovered/Not Resolved]
  - Balance disorder [Unknown]
  - Depression [Unknown]
  - Gait disturbance [Unknown]
  - Back pain [Unknown]
  - Ingrowing nail [Unknown]
  - Pain in extremity [Unknown]
  - Dyspnoea [Unknown]
  - Agitation [Unknown]
  - Upper respiratory tract congestion [Not Recovered/Not Resolved]
  - Fatigue [Unknown]
  - Rheumatic disorder [Recovering/Resolving]
  - Pain [Recovering/Resolving]

NARRATIVE: CASE EVENT DATE: 20221001
